FAERS Safety Report 25649750 (Version 1)
Quarter: 2025Q3

REPORT INFORMATION
  Report Type: Report from Study
  Country: US (occurrence: US)
  Receive Date: 20250806
  Receipt Date: 20250806
  Transmission Date: 20251020
  Serious: No
  Sender: MALLINCKRODT
  Company Number: US-MALLINCKRODT-MNK202501174

PATIENT
  Sex: Female

DRUGS (2)
  1. CORTICOTROPIN [Suspect]
     Active Substance: CORTICOTROPIN
     Indication: Iridocyclitis
     Route: 058
     Dates: start: 202404
  2. POTASSIUM [Concomitant]
     Active Substance: POTASSIUM

REACTIONS (12)
  - Dry skin [Not Recovered/Not Resolved]
  - Eye pain [Unknown]
  - Increased tendency to bruise [Unknown]
  - Ocular hyperaemia [Not Recovered/Not Resolved]
  - Visual impairment [Unknown]
  - Memory impairment [Unknown]
  - Influenza [Unknown]
  - Fatigue [Unknown]
  - Inappropriate schedule of product administration [Unknown]
  - Poor quality sleep [None]
  - Blood potassium decreased [None]
  - Confusional state [None]
